FAERS Safety Report 11605138 (Version 1)
Quarter: 2015Q4

REPORT INFORMATION
  Report Type: Spontaneous
  Country: US (occurrence: None)
  Receive Date: 20151006
  Receipt Date: 20151006
  Transmission Date: 20160304
  Serious: No
  Sender: FDA-Public Use
  Company Number: None

PATIENT
  Age: 77 Year
  Sex: Female
  Weight: 68.04 kg

DRUGS (14)
  1. MURO 128 55 EYE OINTMENT [Concomitant]
  2. VITAMIN B COMPLEX [Concomitant]
     Active Substance: CYANOCOBALAMIN\DEXPANTHENOL\NIACINAMIDE\PYRIDOXINE HYDROCHLORIDE\RIBOFLAVIN 5^-PHOSPHATE SODIUM\THIAMINE HYDROCHLORIDE\VITAMIN B COMPLEX
  3. VITAMIN D [Concomitant]
     Active Substance: CHOLECALCIFEROL
  4. CENTRUM SILVER FOR WOMEN [Concomitant]
     Active Substance: MINERALS\VITAMINS
  5. CALCIUM [Concomitant]
     Active Substance: CALCIUM
  6. JUBLIA [Suspect]
     Active Substance: EFINACONAZOLE
     Indication: ONYCHOMYCOSIS
     Dosage: APPLY TO TOENALILS ONCE DAILY, APPLIED TO A SURFACE. USUALLY THE SKIN
     Dates: start: 20150301, end: 20150904
  7. PROBIOTIC [Concomitant]
     Active Substance: PROBIOTICS NOS
  8. RESTASIS [Concomitant]
     Active Substance: CYCLOSPORINE
  9. ADVIL [Concomitant]
     Active Substance: IBUPROFEN
  10. OSTEO BI-FLEX [Concomitant]
     Active Substance: CHONDROITIN SULFATE A\GLUCOSAMINE
  11. FISH OIL [Concomitant]
     Active Substance: FISH OIL
  12. COQ10 [Concomitant]
     Active Substance: UBIDECARENONE
  13. GENERIC FLONASE [Concomitant]
  14. BABY ASPIRIN [Concomitant]
     Active Substance: ASPIRIN

REACTIONS (4)
  - Skin exfoliation [None]
  - Secretion discharge [None]
  - Skin disorder [None]
  - Application site rash [None]

NARRATIVE: CASE EVENT DATE: 20150917
